FAERS Safety Report 4772016-7 (Version None)
Quarter: 2005Q3

REPORT INFORMATION
  Report Type: 
  Country: None (occurrence: None)
  Receive Date: 20050916
  Receipt Date: 20050906
  Transmission Date: 20060218
  Serious: Yes (Hospitalization)
  Sender: FDA-Public Use
  Company Number: US-ABBOTT-05P-163-0310319-00

PATIENT
  Sex: Male
  Weight: 90.8 kg

DRUGS (9)
  1. HUMIRA [Suspect]
     Indication: RHEUMATOID ARTHRITIS
     Dosage: NOT REPORTED
     Route: 058
     Dates: start: 20050801
  2. METHOTREXATE [Concomitant]
     Indication: RHEUMATOID ARTHRITIS
     Dosage: SIX 2MG TABLETS ON SATURDAY
     Route: 048
  3. FOLIC ACID [Concomitant]
     Indication: RHEUMATOID ARTHRITIS
     Route: 048
  4. HYZAAR [Concomitant]
     Indication: BLOOD PRESSURE INCREASED
     Route: 048
  5. SERTRALINE HYDROCHLORIDE [Concomitant]
     Indication: ANXIETY
     Route: 048
  6. COMBIVENT [Concomitant]
     Indication: ASTHMA
     Route: 055
  7. ADVAIR 250/150 [Concomitant]
     Indication: ASTHMA
     Route: 055
  8. FLUTICASONE PROPIONATE [Concomitant]
     Indication: NASAL CONGESTION
     Dosage: TWO SPRAYS EACH NOSTRIL TWICE DAILY
     Route: 045
  9. ATORVASTATIN [Concomitant]
     Indication: BLOOD CHOLESTEROL
     Route: 048

REACTIONS (5)
  - FAECES DISCOLOURED [None]
  - HEART RATE IRREGULAR [None]
  - PNEUMONIA [None]
  - PULMONARY CONGESTION [None]
  - UPPER RESPIRATORY TRACT CONGESTION [None]
